FAERS Safety Report 16510270 (Version 1)
Quarter: 2019Q3

REPORT INFORMATION
  Report Type: Spontaneous
  Country: US (occurrence: US)
  Receive Date: 20190701
  Receipt Date: 20190701
  Transmission Date: 20191004
  Serious: Yes (Hospitalization)
  Sender: FDA-Public Use
  Company Number: None

PATIENT
  Age: 58 Year
  Sex: Male

DRUGS (13)
  1. CIPROFLOXACIN TAB 500 MG [Concomitant]
     Active Substance: CIPROFLOXACIN
  2. PANTOPRAZOLE TAB 40 MG [Concomitant]
  3. TAMSULOSIN CAP 0.4 MG [Concomitant]
  4. SILDENAFIL. [Suspect]
     Active Substance: SILDENAFIL
     Indication: PULMONARY ARTERIAL HYPERTENSION
     Dosage: ?          OTHER FREQUENCY:EVERY 8 HOURS;?
     Route: 048
     Dates: start: 20181212
  5. HYDRALAZINE TAB 50 MG [Concomitant]
  6. CHLOESTYRAM POW 4 GM [Concomitant]
  7. ELIQUIS TAB 5 MG [Concomitant]
  8. METRONIDAZOL TAB 500 MG [Concomitant]
  9. SMZ/TMP DS TAB 800-160 [Concomitant]
     Active Substance: SULFAMETHOXAZOLE\TRIMETHOPRIM
  10. MAGNESIUM-OX TAB 400 MG [Concomitant]
  11. MYCOPHENOLAT CAP 250 MG [Concomitant]
  12. PAROMOMYCIN CAP 250 MG [Concomitant]
  13. VALACYCLOVIR TAB 500 MG [Concomitant]

REACTIONS (2)
  - Cystitis [None]
  - Urinary tract infection [None]

NARRATIVE: CASE EVENT DATE: 20190624
